FAERS Safety Report 10444544 (Version 1)
Quarter: 2014Q3

REPORT INFORMATION
  Report Type: Spontaneous
  Country: US (occurrence: None)
  Receive Date: 20140909
  Receipt Date: 20140909
  Transmission Date: 20150326
  Serious: Yes (Life-Threatening, Disabling)
  Sender: FDA-Public Use
  Company Number: None

PATIENT
  Age: 71 Year
  Sex: Male
  Weight: 69.85 kg

DRUGS (1)
  1. TRACLEER [Suspect]
     Active Substance: BOSENTAN\BOSENTAN MONOHYDRATE
     Indication: PULMONARY ARTERIAL HYPERTENSION
     Dosage: 1 PILL, TWICE DAILY, TAKEN BY MOUTH
     Route: 048
     Dates: start: 20140826, end: 20140831

REACTIONS (15)
  - Decreased appetite [None]
  - Memory impairment [None]
  - Nausea [None]
  - Influenza [None]
  - Dyspnoea [None]
  - Thirst [None]
  - Restlessness [None]
  - Heart rate increased [None]
  - Weight increased [None]
  - Agitation [None]
  - Confusional state [None]
  - Lethargy [None]
  - Respiratory tract congestion [None]
  - Peripheral swelling [None]
  - Cough [None]

NARRATIVE: CASE EVENT DATE: 20140829
